FAERS Safety Report 8216853-5 (Version None)
Quarter: 2012Q1

REPORT INFORMATION
  Report Type: 
  Country: None (occurrence: None)
  Receive Date: 20120316
  Receipt Date: 20120309
  Transmission Date: 20120608
  Serious: Yes (Other)
  Sender: FDA-Public Use
  Company Number: US-ASTRAZENECA-2012SE11919

PATIENT
  Age: 36 Year
  Sex: Female
  Weight: 55.3 kg

DRUGS (9)
  1. REGLAN [Concomitant]
  2. LISINOPRIL [Concomitant]
     Indication: CARDIOMYOPATHY
     Route: 048
     Dates: start: 20120118
  3. ASPIRIN [Concomitant]
     Route: 048
  4. LIPITOR [Concomitant]
     Indication: HYPERLIPIDAEMIA
     Route: 048
     Dates: start: 20120118
  5. BRILINTA [Suspect]
     Indication: CORONARY ARTERY DISEASE
     Route: 048
     Dates: start: 20120118, end: 20120201
  6. BRILINTA [Suspect]
     Indication: CORONARY ARTERIAL STENT INSERTION
     Route: 048
     Dates: start: 20120118, end: 20120201
  7. COREG [Concomitant]
     Indication: CORONARY ARTERY DISEASE
     Route: 048
     Dates: start: 20120118
  8. PLAVIX [Concomitant]
  9. COREG [Concomitant]
     Indication: MYOCARDIAL INFARCTION
     Route: 048
     Dates: start: 20120118

REACTIONS (2)
  - DRUG ERUPTION [None]
  - PRURITUS [None]
